FAERS Safety Report 5031219-7 (Version None)
Quarter: 2006Q2

REPORT INFORMATION
  Report Type: 
  Country: None (occurrence: None)
  Receive Date: 20060621
  Receipt Date: 20060404
  Transmission Date: 20061013
  Serious: No
  Sender: FDA-Public Use
  Company Number: US-GLAXOSMITHKLINE-A0600320A

PATIENT
  Age: 59 Year
  Sex: Female

DRUGS (4)
  1. AVANDARYL [Suspect]
     Dosage: 1TAB PER DAY
     Route: 048
     Dates: start: 20060404
  2. PREVACID [Concomitant]
  3. LISINOPRIL [Concomitant]
  4. PROTONIX [Concomitant]
     Indication: DEPRESSION

REACTIONS (1)
  - FATIGUE [None]
